FAERS Safety Report 8105412-0 (Version None)
Quarter: 2012Q1

REPORT INFORMATION
  Report Type: 
  Country: None (occurrence: None)
  Receive Date: 20120201
  Receipt Date: 20120126
  Transmission Date: 20120608
  Serious: Yes (Life-Threatening, Hospitalization)
  Sender: FDA-Public Use
  Company Number: FR-PFIZER INC-K200901435

PATIENT
  Age: 60 Year
  Sex: Female
  Weight: 71 kg

DRUGS (6)
  1. METFORMIN HYDROCHLORIDE [Suspect]
     Dosage: UNK
     Route: 048
  2. LANSOPRAZOLE [Concomitant]
     Dosage: UNK
  3. ASPIRIN [Concomitant]
     Dosage: UNK
  4. ALTACE [Suspect]
     Dosage: UNK
     Route: 048
  5. GLICLAZIDE [Concomitant]
     Dosage: UNK
  6. SIMVASTATIN [Concomitant]
     Dosage: UNK

REACTIONS (4)
  - LACTIC ACIDOSIS [None]
  - RENAL FAILURE ACUTE [None]
  - DIARRHOEA [None]
  - VOMITING [None]
